FAERS Safety Report 10121106 (Version 1)
Quarter: 2014Q2

REPORT INFORMATION
  Report Type: Spontaneous
  Country: US (occurrence: US)
  Receive Date: 20140425
  Receipt Date: 20140425
  Transmission Date: 20141212
  Serious: No
  Sender: FDA-Public Use
  Company Number: US-ASTRAZENECA-2013SE92600

PATIENT
  Sex: Male

DRUGS (4)
  1. PRILOSEC OTC [Suspect]
     Route: 048
     Dates: start: 20131212
  2. SINGULAIR [Interacting]
     Dosage: UNKNOWN
     Route: 065
  3. BACTRIM [Interacting]
     Dosage: UNKNOWN
     Route: 065
  4. SEVERAL INHALERS [Interacting]
     Route: 065

REACTIONS (4)
  - Drug interaction [Unknown]
  - Vomiting [Recovered/Resolved]
  - Diarrhoea [Recovered/Resolved]
  - Abdominal pain [Recovered/Resolved]
